FAERS Safety Report 24108253 (Version 1)
Quarter: 2024Q3

REPORT INFORMATION
  Report Type: Other
  Country: CA (occurrence: CA)
  Receive Date: 20240718
  Receipt Date: 20240718
  Transmission Date: 20241016
  Serious: Yes (Other)
  Sender: APOTEX
  Company Number: CA-APOTEX-2024AP008136

PATIENT
  Age: 66 Year
  Sex: Female
  Weight: 54.422 kg

DRUGS (1)
  1. BRIMONIDINE TARTRATE\TIMOLOL MALEATE [Suspect]
     Active Substance: BRIMONIDINE TARTRATE\TIMOLOL MALEATE
     Indication: Glaucoma
     Dosage: 2 GTT DROPS, BID
     Route: 047

REACTIONS (1)
  - Ocular hyperaemia [Unknown]
